FAERS Safety Report 11775283 (Version 1)
Quarter: 2015Q4

REPORT INFORMATION
  Report Type: Spontaneous
  Country: US (occurrence: US)
  Receive Date: 20151124
  Receipt Date: 20151124
  Transmission Date: 20160304
  Serious: No
  Sender: FDA-Public Use
  Company Number: US-ACCORD-034323

PATIENT
  Age: 71 Year
  Sex: Male

DRUGS (1)
  1. LISINOPRIL ACCORD [Suspect]
     Active Substance: LISINOPRIL
     Indication: PRODUCT USED FOR UNKNOWN INDICATION
     Dosage: STARTED SINCE AUGUST (STRENGTH: 20 MG)

REACTIONS (2)
  - Blood pressure increased [Unknown]
  - Malaise [Unknown]
